FAERS Safety Report 8805199 (Version 2)
Quarter: 2015Q2

REPORT INFORMATION
  Report Type: Report from Study
  Country: US (occurrence: US)
  Receive Date: 20120924
  Receipt Date: 20150617
  Transmission Date: 20150821
  Serious: Yes (Death)
  Sender: FDA-Public Use
  Company Number: US-ROCHE-1123459

PATIENT
  Sex: Male
  Weight: 101 kg

DRUGS (2)
  1. AVASTIN [Suspect]
     Active Substance: BEVACIZUMAB
     Indication: HEPATIC CANCER
     Route: 042
     Dates: start: 20060120
  2. CAPECITABINE. [Concomitant]
     Active Substance: CAPECITABINE
     Route: 065

REACTIONS (2)
  - Death [Fatal]
  - Off label use [Unknown]
